FAERS Safety Report 13082430 (Version 1)
Quarter: 2017Q1

REPORT INFORMATION
  Report Type: Spontaneous
  Country: US (occurrence: US)
  Receive Date: 20170103
  Receipt Date: 20170103
  Transmission Date: 20170428
  Serious: No
  Sender: FDA-Public Use
  Company Number: US-ASTRAZENECA-2016SF29916

PATIENT
  Age: 6 Year
  Sex: Male

DRUGS (1)
  1. SYMBICORT [Suspect]
     Active Substance: BUDESONIDE\FORMOTEROL FUMARATE DIHYDRATE
     Dosage: 80 /4.5 UG
     Route: 055
     Dates: start: 2014

REACTIONS (5)
  - Asthma [Unknown]
  - Tendonitis [Unknown]
  - Off label use [Unknown]
  - Musculoskeletal stiffness [Unknown]
  - Drug administered to patient of inappropriate age [Unknown]
